FAERS Safety Report 10729053 (Version 2)
Quarter: 2015Q1

REPORT INFORMATION
  Report Type: Spontaneous
  Country: BR (occurrence: BR)
  Receive Date: 20150122
  Receipt Date: 20150317
  Transmission Date: 20150721
  Serious: Yes (Death, Other)
  Sender: FDA-Public Use
  Company Number: BR-JNJFOC-20150106242

PATIENT
  Age: 81 Year
  Sex: Male
  Weight: 109.3 kg

DRUGS (8)
  1. CONTRAST AGENT [Suspect]
     Active Substance: UNSPECIFIED INGREDIENT
     Indication: COMPUTERISED TOMOGRAM
     Route: 065
  2. INSULIN [Concomitant]
     Active Substance: INSULIN NOS
     Indication: DIABETES MELLITUS
     Route: 065
  3. VENALOT [COUMARIN,TROXERUTIN] [Interacting]
     Active Substance: COUMARIN\TROXERUTIN
     Indication: PERIPHERAL VENOUS DISEASE
     Route: 065
  4. SIMVASTATIN. [Concomitant]
     Active Substance: SIMVASTATIN
     Indication: DYSLIPIDAEMIA
     Route: 065
  5. ACITRETIN. [Concomitant]
     Active Substance: ACITRETIN
     Indication: PSORIASIS
     Route: 065
  6. STELARA [Suspect]
     Active Substance: USTEKINUMAB
     Indication: PSORIASIS
     Route: 058
  7. ACETYLSALICYLIC ACID [Concomitant]
     Active Substance: ASPIRIN
     Indication: CEREBROVASCULAR ACCIDENT
     Route: 065
  8. ACETYLSALICYLIC ACID [Concomitant]
     Active Substance: ASPIRIN
     Indication: PULMONARY EMBOLISM
     Route: 065

REACTIONS (4)
  - Respiratory failure [Not Recovered/Not Resolved]
  - Drug interaction [Unknown]
  - Cardio-respiratory arrest [Fatal]
  - Generalised oedema [Unknown]

NARRATIVE: CASE EVENT DATE: 20141018
